FAERS Safety Report 10633778 (Version 1)
Quarter: 2014Q4

REPORT INFORMATION
  Report Type: Spontaneous
  Country: CA (occurrence: CA)
  Receive Date: 20141205
  Receipt Date: 20141205
  Transmission Date: 20150529
  Serious: Yes (Life-Threatening, Hospitalization, Other)
  Sender: FDA-Public Use
  Company Number: CA-TEVA-526260USA

PATIENT
  Age: 55 Year
  Sex: Female
  Weight: 77.18 kg

DRUGS (1)
  1. TEVA-ESCITALOPRAM [Suspect]
     Active Substance: ESCITALOPRAM OXALATE
     Indication: ANXIETY
     Dosage: 10 MILLIGRAM DAILY;
     Route: 048
     Dates: start: 20141129, end: 20141129

REACTIONS (9)
  - Pruritus [Unknown]
  - Pharyngeal oedema [Unknown]
  - Paraesthesia oral [None]
  - Burning sensation [Unknown]
  - Urticaria [Unknown]
  - Hot flush [Unknown]
  - Paraesthesia oral [Unknown]
  - Vomiting [Unknown]
  - Nausea [Unknown]
